FAERS Safety Report 23460853 (Version 1)
Quarter: 2024Q1

REPORT INFORMATION
  Report Type: Spontaneous
  Country: US (occurrence: US)
  Receive Date: 20240131
  Receipt Date: 20240131
  Transmission Date: 20240410
  Serious: No
  Sender: FDA-Public Use
  Company Number: US-AMNEAL PHARMACEUTICALS-2023-AMRX-01070

PATIENT
  Sex: Female

DRUGS (1)
  1. ELURYNG [Suspect]
     Active Substance: ETHINYL ESTRADIOL\ETONOGESTREL
     Indication: Product used for unknown indication
     Dosage: 0.12/0.015 MG, 1 /DAY
     Route: 067
     Dates: start: 202301, end: 20230330

REACTIONS (3)
  - Discomfort [Not Recovered/Not Resolved]
  - Pain [Not Recovered/Not Resolved]
  - Device breakage [Unknown]

NARRATIVE: CASE EVENT DATE: 20230330
